FAERS Safety Report 19877348 (Version 1)
Quarter: 2021Q3

REPORT INFORMATION
  Report Type: Spontaneous
  Country: US (occurrence: US)
  Receive Date: 20210924
  Receipt Date: 20210924
  Transmission Date: 20211014
  Serious: No
  Sender: FDA-Public Use
  Company Number: US-ALLERGAN-2117441US

PATIENT
  Sex: Female
  Weight: 88.45 kg

DRUGS (3)
  1. SUCRALFATE TABLET [Suspect]
     Active Substance: SUCRALFATE
     Indication: GASTROOESOPHAGEAL REFLUX DISEASE
     Dosage: TWO TO FOUR DAILY
     Route: 048
     Dates: start: 202102
  2. LACTULOSE. [Concomitant]
     Active Substance: LACTULOSE
     Indication: IRRITABLE BOWEL SYNDROME
     Dosage: 10GM/15ML; LIQUID, TAKE AS NEEDED
     Route: 048
  3. SIMVASTATIN. [Concomitant]
     Active Substance: SIMVASTATIN
     Indication: BLOOD CHOLESTEROL
     Dosage: 40 MG, QD
     Route: 048

REACTIONS (4)
  - Drug ineffective [Unknown]
  - Product complaint [Unknown]
  - Abdominal pain upper [Unknown]
  - Cough [Unknown]
